FAERS Safety Report 5503345-7 (Version None)
Quarter: 2007Q4

REPORT INFORMATION
  Report Type: 
  Country: None (occurrence: None)
  Receive Date: 20071031
  Receipt Date: 20071029
  Transmission Date: 20080405
  Serious: Yes (Hospitalization)
  Sender: FDA-Public Use
  Company Number: US-BOEHRINGER INGELHEIM PHARMACEUTICALS, INC.-2007-BP-17399BP

PATIENT
  Sex: Male

DRUGS (8)
  1. APTIVUS/RITONAVIR CAPSULES [Suspect]
     Indication: HIV INFECTION
     Dates: start: 20060301, end: 20070626
  2. FUZEON [Concomitant]
  3. TRUVADA [Concomitant]
     Dates: start: 20060301
  4. SUSTIVA [Concomitant]
  5. ATRIPLA [Concomitant]
  6. LEXAPRO [Concomitant]
  7. AZITHROMYCIN [Concomitant]
  8. SULFAMETHOXAZOLE AND TRIMETHOPRIM [Concomitant]
     Route: 048

REACTIONS (2)
  - APHASIA [None]
  - HAEMORRHAGE INTRACRANIAL [None]
